FAERS Safety Report 5055950-2 (Version None)
Quarter: 2006Q3

REPORT INFORMATION
  Report Type: 
  Country: None (occurrence: None)
  Receive Date: 20060720
  Receipt Date: 20060710
  Transmission Date: 20061208
  Serious: Yes (Hospitalization)
  Sender: FDA-Public Use
  Company Number: FR-BRISTOL-MYERS SQUIBB COMPANY-13438486

PATIENT
  Age: 66 Year
  Sex: Female

DRUGS (12)
  1. COUMADIN [Suspect]
     Indication: EMBOLISM
     Route: 048
     Dates: start: 20060115, end: 20060408
  2. COUMADIN [Suspect]
     Indication: THROMBOSIS
     Route: 048
     Dates: start: 20060115, end: 20060408
  3. IMOVANE [Concomitant]
     Indication: SLEEP DISORDER
     Route: 048
     Dates: end: 20060411
  4. NEURONTIN [Concomitant]
     Indication: EPILEPSY
     Route: 048
     Dates: start: 20051115
  5. ODRIK [Concomitant]
     Indication: HYPERTENSION
     Route: 048
     Dates: end: 20060408
  6. DEPAMIDE [Concomitant]
     Indication: SCHIZOPHRENIA
     Route: 048
     Dates: end: 20060411
  7. TERCIAN [Concomitant]
     Indication: SCHIZOPHRENIA
     Route: 048
  8. LOXEN [Concomitant]
  9. ZYPREXA [Concomitant]
  10. ATHYMIL [Concomitant]
  11. MEDIATENSYL [Concomitant]
  12. AKINETON [Concomitant]

REACTIONS (3)
  - ANAEMIA [None]
  - OESOPHAGITIS [None]
  - SUBCUTANEOUS HAEMATOMA [None]
